FAERS Safety Report 20985953 (Version 5)
Quarter: 2022Q4

REPORT INFORMATION
  Report Type: Report from Study
  Country: US (occurrence: US)
  Receive Date: 20220621
  Receipt Date: 20221003
  Transmission Date: 20230112
  Serious: Yes (Hospitalization)
  Sender: FDA-Public Use
  Company Number: US-BRISTOL-MYERS SQUIBB COMPANY-2022-056770

PATIENT
  Age: 60 Year
  Sex: Female
  Weight: 56 kg

DRUGS (24)
  1. CISPLATIN [Suspect]
     Active Substance: CISPLATIN
     Indication: Non-small cell lung cancer
     Route: 065
     Dates: start: 20220421, end: 20220421
  2. CISPLATIN [Suspect]
     Active Substance: CISPLATIN
     Route: 065
     Dates: start: 20220602
  3. PEMETREXED DISODIUM [Suspect]
     Active Substance: PEMETREXED DISODIUM
     Indication: Non-small cell lung cancer
     Route: 065
     Dates: start: 20220421, end: 20220421
  4. PEMETREXED DISODIUM [Suspect]
     Active Substance: PEMETREXED DISODIUM
     Route: 065
     Dates: start: 20220602, end: 20220602
  5. OXYCODONE [Concomitant]
     Active Substance: OXYCODONE
     Indication: Adverse event
     Dosage: AS NEEDED
     Route: 048
     Dates: start: 20220602, end: 20220701
  6. DIFLUCAN [Concomitant]
     Active Substance: FLUCONAZOLE
     Indication: Adverse event
     Dosage: DAILY; PER DAY
     Route: 048
     Dates: start: 20220524, end: 20220602
  7. MELATONIN [Concomitant]
     Active Substance: MELATONIN
     Indication: Product used for unknown indication
     Dosage: AS NEEDED
     Route: 048
     Dates: start: 20200101
  8. VITAMIN D3 [Concomitant]
     Active Substance: CHOLECALCIFEROL
     Indication: Product used for unknown indication
     Dosage: DAILY; PER DAY, UNIT DOSE 1,UNITS NOS
     Route: 048
     Dates: start: 20220330
  9. ZINC [Concomitant]
     Active Substance: ZINC
     Indication: Product used for unknown indication
     Dosage: DAILY; PER DAY,UNIT DOSE1,UNITS NOS
     Route: 048
     Dates: start: 20220330
  10. FOSAPREPITANT [Concomitant]
     Active Substance: FOSAPREPITANT
     Indication: Product used for unknown indication
     Route: 042
     Dates: start: 20220602, end: 20220602
  11. PALONOSETRON [Concomitant]
     Active Substance: PALONOSETRON
     Indication: Product used for unknown indication
     Route: 042
     Dates: start: 20220602, end: 20220602
  12. FUROSEMIDE [Concomitant]
     Active Substance: FUROSEMIDE
     Indication: Product used for unknown indication
     Route: 042
     Dates: start: 20220602, end: 20220602
  13. ACETAMINOPHEN [Concomitant]
     Active Substance: ACETAMINOPHEN
     Indication: Product used for unknown indication
     Dosage: AS NEEDED
     Route: 048
     Dates: start: 19970101
  14. DIPHENHYDRAMINE [Concomitant]
     Active Substance: DIPHENHYDRAMINE
     Indication: Product used for unknown indication
     Dosage: AS NEEDED
     Route: 048
     Dates: start: 20020101
  15. COMPAZINE (PROCHLORPARAZINE) [Concomitant]
     Indication: Product used for unknown indication
     Dosage: AS NEEDED
     Route: 048
     Dates: start: 20220401
  16. DEXAMETHASONE [Concomitant]
     Active Substance: DEXAMETHASONE
     Indication: Product used for unknown indication
     Dosage: BD; TWICE PER DAY
     Route: 048
     Dates: start: 20220420
  17. DEXAMETHASONE [Concomitant]
     Active Substance: DEXAMETHASONE
     Dosage: EVERY 3 WEEKS; Q3S
     Route: 042
     Dates: start: 20220602
  18. FAMITIDINE [Concomitant]
     Indication: Product used for unknown indication
     Dosage: AS NEEDED
     Route: 048
     Dates: start: 19981201
  19. FOLVITE (FOLIC ACID) [Concomitant]
     Indication: Product used for unknown indication
     Dosage: DAILY; PER DAY
     Route: 048
     Dates: start: 20220328
  20. VITAMIN B12 [Concomitant]
     Active Substance: CYANOCOBALAMIN
     Indication: Product used for unknown indication
     Dosage: 4 TIMES PER YEAR
     Route: 030
     Dates: start: 20220328
  21. VITAMIN B12 [Concomitant]
     Active Substance: CYANOCOBALAMIN
     Dosage: ONCE
     Route: 030
     Dates: start: 20220602, end: 20220602
  22. VITAMIN C [Concomitant]
     Active Substance: ASCORBIC ACID
     Indication: Product used for unknown indication
     Dosage: 1 UNIT NOT SPECIFIED DAILY; PER DAY
     Route: 048
     Dates: start: 20220330
  23. MOUISTURIZING CREAM (EUCERIN) [Concomitant]
     Indication: Product used for unknown indication
     Dosage: 1 UNIT NOT SPECIFIED, DAILY; PER DAY
     Route: 061
     Dates: start: 20220512
  24. NBM BMX [Concomitant]
     Indication: Product used for unknown indication
     Dosage: 5 UNIT NOT SPECIFIED AS NEEDED
     Route: 048
     Dates: start: 20220602

REACTIONS (2)
  - Dehydration [Recovered/Resolved]
  - Hyperglycaemia [Recovered/Resolved]

NARRATIVE: CASE EVENT DATE: 20220609
